FAERS Safety Report 23457565 (Version 1)
Quarter: 2024Q1

REPORT INFORMATION
  Report Type: Spontaneous
  Country: US (occurrence: US)
  Receive Date: 20240130
  Receipt Date: 20240130
  Transmission Date: 20240410
  Serious: No
  Sender: FDA-Public Use
  Company Number: US-AMERICAN REGENT INC-2023000285

PATIENT
  Age: 39 Year
  Sex: Female

DRUGS (4)
  1. ESTRADIOL VALERATE [Suspect]
     Active Substance: ESTRADIOL VALERATE
     Indication: In vitro fertilisation
     Dosage: 0.1 MILLILITER, SINGLE
     Route: 030
     Dates: start: 20230125, end: 20230125
  2. ESTRADIOL VALERATE [Suspect]
     Active Substance: ESTRADIOL VALERATE
     Dosage: 0.2 MILLILITER, SINGLE
     Route: 030
     Dates: start: 20230128, end: 20230128
  3. LUPRON [Concomitant]
     Active Substance: LEUPROLIDE ACETATE
     Indication: In vitro fertilisation
     Dosage: 10 UNITS
     Route: 059
     Dates: start: 20230111, end: 20230130
  4. LUPRON [Concomitant]
     Active Substance: LEUPROLIDE ACETATE
     Indication: In vitro fertilisation

REACTIONS (6)
  - Drug ineffective [Unknown]
  - Treatment failure [Unknown]
  - Emotional distress [Unknown]
  - Pain [Unknown]
  - Product quality issue [Unknown]
  - Product use in unapproved indication [Unknown]

NARRATIVE: CASE EVENT DATE: 20230125
